FAERS Safety Report 19735463 (Version 1)
Quarter: 2021Q3

REPORT INFORMATION
  Report Type: Spontaneous
  Country: DE (occurrence: DE)
  Receive Date: 20210823
  Receipt Date: 20210823
  Transmission Date: 20211014
  Serious: Yes (Other)
  Sender: FDA-Public Use
  Company Number: DE-PFIZER INC-202101017466

PATIENT
  Sex: Female

DRUGS (3)
  1. TUCATINIB [Concomitant]
     Active Substance: TUCATINIB
     Indication: BREAST CANCER
     Dosage: UNK
     Dates: start: 202103
  2. CAPECITABINE. [Concomitant]
     Active Substance: CAPECITABINE
     Dosage: UNK
     Route: 048
     Dates: start: 202103
  3. TRASTUZUMAB. [Suspect]
     Active Substance: TRASTUZUMAB
     Dosage: UNK
     Dates: start: 202103

REACTIONS (2)
  - Brain oedema [Not Recovered/Not Resolved]
  - Off label use [Unknown]
